FAERS Safety Report 6640399-9 (Version None)
Quarter: 2010Q1

REPORT INFORMATION
  Report Type: 
  Country: None (occurrence: None)
  Receive Date: 20100303
  Receipt Date: 20090506
  Transmission Date: 20100710
  Serious: Yes (Other)
  Sender: FDA-Public Use
  Company Number: 631879

PATIENT
  Age: 78 Year
  Sex: Female

DRUGS (7)
  1. BONIVA [Suspect]
     Indication: OSTEOPOROSIS
     Dates: start: 20070223
  2. NEXIUM [Concomitant]
  3. CARAFATE [Concomitant]
  4. SYNTHROID [Concomitant]
  5. LIPITOR [Concomitant]
  6. PANCREASE (*PANCREATIN/*PANCRELIPASE) [Concomitant]
  7. EVISTA [Concomitant]

REACTIONS (1)
  - PANCREATITIS [None]
